FAERS Safety Report 12548444 (Version 2)
Quarter: 2016Q3

REPORT INFORMATION
  Report Type: Spontaneous
  Country: US (occurrence: US)
  Receive Date: 20160712
  Receipt Date: 20160816
  Transmission Date: 20161109
  Serious: Yes (Other)
  Sender: FDA-Public Use
  Company Number: US-JNJFOC-20160707095

PATIENT
  Sex: Male
  Weight: 104.33 kg

DRUGS (2)
  1. FENTANYL. [Suspect]
     Active Substance: FENTANYL
     Indication: ARTHRALGIA
     Dosage: INITIATED ABOUT 5-7 YEARS AGO.
     Route: 062
     Dates: end: 2016
  2. LORTAB [Suspect]
     Active Substance: ACETAMINOPHEN\HYDROCODONE BITARTRATE
     Indication: BREAKTHROUGH PAIN
     Route: 048

REACTIONS (7)
  - Drug dose omission [Unknown]
  - Product quality issue [Unknown]
  - Abasia [Not Recovered/Not Resolved]
  - Underdose [Unknown]
  - Nephropathy [Unknown]
  - Breakthrough pain [Not Recovered/Not Resolved]
  - Wrong technique in product usage process [Unknown]
